FAERS Safety Report 21093471 (Version 1)
Quarter: 2022Q3

REPORT INFORMATION
  Report Type: Spontaneous
  Country: GB (occurrence: GB)
  Receive Date: 20220718
  Receipt Date: 20220718
  Transmission Date: 20221027
  Serious: Yes (Hospitalization)
  Sender: FDA-Public Use
  Company Number: GB-MYLANLABS-2022M1047877

PATIENT
  Sex: Male
  Weight: 85.6 kg

DRUGS (5)
  1. CLOZARIL [Suspect]
     Active Substance: CLOZAPINE
     Indication: Schizoaffective disorder
     Dosage: 50 MILLIGRAM, QD
     Route: 048
     Dates: start: 20220623, end: 20220705
  2. TRIHEXYPHENIDYL HYDROCHLORIDE [Concomitant]
     Active Substance: TRIHEXYPHENIDYL HYDROCHLORIDE
     Indication: Extrapyramidal disorder
     Dosage: UNK UNK, TID (3MG/ 2MG/ 1MG THRICE DAILY)
     Route: 048
  3. DEPAKOTE [Concomitant]
     Active Substance: DIVALPROEX SODIUM
     Indication: Affective disorder
     Dosage: 1 GRAM, BID
     Route: 048
  4. FOLIC ACID [Concomitant]
     Active Substance: FOLIC ACID
     Dosage: 5 MILLIGRAM, QD
     Route: 048
  5. CHOLECALCIFEROL [Concomitant]
     Active Substance: CHOLECALCIFEROL
     Indication: Vitamin D deficiency
     Dosage: UNK, QD (800 UNITS )
     Route: 048

REACTIONS (2)
  - Pneumonia [Unknown]
  - Off label use [Recovering/Resolving]
